FAERS Safety Report 5747135-9 (Version None)
Quarter: 2008Q2

REPORT INFORMATION
  Report Type: 
  Country: None (occurrence: None)
  Receive Date: 20080522
  Receipt Date: 20080513
  Transmission Date: 20081010
  Serious: Yes (Hospitalization)
  Sender: FDA-Public Use
  Company Number: JP-AMGEN-US279458

PATIENT
  Sex: Female
  Weight: 59 kg

DRUGS (13)
  1. ENBREL [Suspect]
     Indication: RHEUMATOID ARTHRITIS
     Route: 058
     Dates: start: 20080429, end: 20080502
  2. VOLTAREN [Suspect]
  3. RHEUMATREX [Concomitant]
  4. PROGRAF [Concomitant]
  5. OMEPRAZOLE [Concomitant]
  6. MUCOSTA [Concomitant]
  7. ISONIAZID [Concomitant]
     Indication: ANTIBIOTIC PROPHYLAXIS
     Dates: start: 20080403
  8. FOLIAMIN [Concomitant]
  9. SELECTOL [Concomitant]
  10. HERBESSER [Concomitant]
  11. PREMARIN [Concomitant]
  12. FAMOTIDINE [Concomitant]
  13. FAMOTIDINE [Concomitant]

REACTIONS (5)
  - ABDOMINAL PAIN UPPER [None]
  - DECREASED APPETITE [None]
  - HYPOAESTHESIA [None]
  - HYPOAESTHESIA ORAL [None]
  - MALAISE [None]
